FAERS Safety Report 10583599 (Version 1)
Quarter: 2014Q4

REPORT INFORMATION
  Report Type: Report from Study
  Country: US (occurrence: US)
  Receive Date: 20141114
  Receipt Date: 20141114
  Transmission Date: 20150529
  Serious: Yes (Other)
  Sender: FDA-Public Use
  Company Number: PHEH2014US022513

PATIENT
  Sex: Male

DRUGS (1)
  1. SANDOSTATIN LAR DEPOT [Suspect]
     Active Substance: OCTREOTIDE ACETATE
     Indication: PRODUCT USED FOR UNKNOWN INDICATION
     Dosage: 20 MG, EVERY 28 DAYS
     Route: 065

REACTIONS (5)
  - Abdominal hernia [Unknown]
  - Ascites [Unknown]
  - Hepatomegaly [Unknown]
  - Protein deficiency [Unknown]
  - Hepatic lesion [Unknown]
